FAERS Safety Report 24120079 (Version 3)
Quarter: 2024Q3

REPORT INFORMATION
  Report Type: Spontaneous
  Country: CA (occurrence: CA)
  Receive Date: 20240722
  Receipt Date: 20240913
  Transmission Date: 20241016
  Serious: Yes (Other)
  Sender: PFIZER
  Company Number: CA-PFIZER INC-202300026489

PATIENT
  Age: 53 Year
  Sex: Male

DRUGS (2)
  1. RUXIENCE [Suspect]
     Active Substance: RITUXIMAB-PVVR
     Indication: Glomerulonephritis membranous
     Dosage: 1 G, DAY 1 AND DAY 15. (DAY 15 DOSE DATE UNAVAILABLE)
     Route: 042
     Dates: start: 20230214, end: 2023
  2. RUXIENCE [Suspect]
     Active Substance: RITUXIMAB-PVVR
     Dosage: UNK
     Route: 042
     Dates: start: 2023

REACTIONS (3)
  - Renal impairment [Unknown]
  - Off label use [Unknown]
  - Depression [Not Recovered/Not Resolved]
